FAERS Safety Report 14213662 (Version 1)
Quarter: 2017Q4

REPORT INFORMATION
  Report Type: Spontaneous
  Country: US (occurrence: US)
  Receive Date: 20171122
  Receipt Date: 20171122
  Transmission Date: 20180321
  Serious: No
  Sender: FDA-Public Use
  Company Number: US-ORION CORPORATION ORION PHARMA-ENTC2017-0332

PATIENT
  Sex: Male

DRUGS (5)
  1. STALEVO [Suspect]
     Active Substance: CARBIDOPA\ENTACAPONE\LEVODOPA
     Route: 065
  2. MIRAPEX [Concomitant]
     Active Substance: PRAMIPEXOLE DIHYDROCHLORIDE
     Route: 065
  3. LIPITOR [Concomitant]
     Active Substance: ATORVASTATIN CALCIUM
     Route: 065
  4. ASPIRIN. [Concomitant]
     Active Substance: ASPIRIN
     Route: 065
  5. LEXAPRO [Concomitant]
     Active Substance: ESCITALOPRAM OXALATE
     Route: 065

REACTIONS (8)
  - Fall [Recovering/Resolving]
  - Blepharospasm [Unknown]
  - Balance disorder [Recovering/Resolving]
  - Dry mouth [Unknown]
  - Hallucination [Unknown]
  - Hyperventilation [Unknown]
  - Gait disturbance [Recovering/Resolving]
  - Hypersomnia [Recovering/Resolving]
